FAERS Safety Report 19408303 (Version 1)
Quarter: 2021Q2

REPORT INFORMATION
  Report Type: Spontaneous
  Country: PL (occurrence: PL)
  Receive Date: 20210612
  Receipt Date: 20210612
  Transmission Date: 20210717
  Serious: Yes (Hospitalization)
  Sender: FDA-Public Use
  Company Number: PL-MACLEODS PHARMACEUTICALS US LTD-MAC2021031501

PATIENT

DRUGS (1)
  1. ACYCLOVIR. [Suspect]
     Active Substance: ACYCLOVIR
     Indication: OPHTHALMIC HERPES SIMPLEX
     Dosage: 400 MILLIGRAM, BID
     Route: 065

REACTIONS (14)
  - Hyperkalaemia [Unknown]
  - Neurotoxicity [Recovered/Resolved]
  - Extrapyramidal disorder [Recovering/Resolving]
  - Vertigo [Recovered/Resolved]
  - Dizziness [Recovered/Resolved]
  - Tremor [Recovered/Resolved]
  - General physical health deterioration [Recovered/Resolved]
  - Rales [Unknown]
  - Dyspnoea [Recovered/Resolved]
  - Myoclonus [Recovered/Resolved]
  - Pleural effusion [Unknown]
  - Asthenia [Recovered/Resolved]
  - Speech disorder [Recovered/Resolved]
  - Anaemia [Unknown]
